FAERS Safety Report 4646001-X (Version None)
Quarter: 2005Q2

REPORT INFORMATION
  Report Type: 
  Country: None (occurrence: None)
  Receive Date: 20050427
  Receipt Date: 20050329
  Transmission Date: 20051028
  Serious: Yes (Other)
  Sender: FDA-Public Use
  Company Number: 200510951JP

PATIENT
  Age: 71 Year
  Sex: Female
  Weight: 38 kg

DRUGS (4)
  1. LANTUS [Suspect]
     Indication: DIABETES MELLITUS
     Route: 058
     Dates: start: 20050207, end: 20050330
  2. OPTIPEN (INSULIN PUMP) [Suspect]
  3. ACTOS [Concomitant]
     Indication: DIABETES MELLITUS
     Dosage: DOSE: 1 TABLET
     Route: 048
     Dates: start: 20001114
  4. PRAVASTATIN SODIUM [Concomitant]
     Indication: HYPERLIPIDAEMIA
     Dosage: DOSE: 1 TABLET
     Route: 048
     Dates: start: 20010829

REACTIONS (1)
  - CONJUNCTIVITIS [None]
